FAERS Safety Report 5869679-1 (Version None)
Quarter: 2008Q3

REPORT INFORMATION
  Report Type: 
  Country: None (occurrence: None)
  Receive Date: 20080902
  Receipt Date: 20080820
  Transmission Date: 20090109
  Serious: Yes (Other)
  Sender: FDA-Public Use
  Company Number: 2008AL009756

PATIENT
  Age: 58 Year
  Sex: Female

DRUGS (10)
  1. DIGOXIN [Suspect]
     Dosage: PO
     Route: 048
  2. CARVEDILOL [Suspect]
     Dosage: PO
     Route: 048
  3. CARVEDILOL [Concomitant]
  4. XANA [Concomitant]
  5. LIPITOR [Concomitant]
  6. VALTREX [Concomitant]
  7. ATIVAN [Concomitant]
  8. ASPIRIN [Concomitant]
  9. VITAMIN B COMPLEX CAP [Concomitant]
  10. NEXIUM [Concomitant]

REACTIONS (3)
  - HYPOTENSION [None]
  - INTESTINAL ISCHAEMIA [None]
  - LARGE INTESTINAL HAEMORRHAGE [None]
